FAERS Safety Report 12868465 (Version 1)
Quarter: 2016Q4

REPORT INFORMATION
  Report Type: Spontaneous
  Country: US (occurrence: US)
  Receive Date: 20161020
  Receipt Date: 20161020
  Transmission Date: 20170207
  Serious: No
  Sender: FDA-Public Use
  Company Number: US-ROCHE-1827092

PATIENT
  Sex: Female

DRUGS (11)
  1. ALECTINIB [Suspect]
     Active Substance: ALECTINIB
     Indication: PRODUCT USED FOR UNKNOWN INDICATION
     Route: 065
     Dates: start: 20150601, end: 201606
  2. ATIVAN [Concomitant]
     Active Substance: LORAZEPAM
     Route: 065
  3. LOMOTIL (UNITED STATES) [Concomitant]
     Dosage: 4 TIMES A DAY AS PER NEED
     Route: 065
  4. DECADRON [Concomitant]
     Active Substance: DEXAMETHASONE
     Route: 065
  5. KEPPRA [Concomitant]
     Active Substance: LEVETIRACETAM
     Route: 065
  6. LOPERAMIDE [Concomitant]
     Active Substance: LOPERAMIDE
     Route: 065
  7. DECADRON [Concomitant]
     Active Substance: DEXAMETHASONE
     Route: 065
  8. PEPCID [Concomitant]
     Active Substance: FAMOTIDINE
     Route: 065
  9. ZYRTEC [Concomitant]
     Active Substance: CETIRIZINE HYDROCHLORIDE
     Route: 065
  10. LAMICTAL [Concomitant]
     Active Substance: LAMOTRIGINE
     Dosage: 100 MG IN THE MORNING AND 150 MG IN THE EVENING
     Route: 065
  11. ZOFRAN [Concomitant]
     Active Substance: ONDANSETRON HYDROCHLORIDE
     Route: 065

REACTIONS (12)
  - Treatment failure [Unknown]
  - Platelet count decreased [Unknown]
  - Red cell distribution width increased [Unknown]
  - Red blood cell count decreased [Unknown]
  - White blood cell count increased [Unknown]
  - Lymphocyte count decreased [Unknown]
  - Blood glucose increased [Unknown]
  - Neutrophil count increased [Unknown]
  - Therapeutic response decreased [Unknown]
  - Platelet count increased [Unknown]
  - Blood creatinine decreased [Unknown]
  - Monocyte count decreased [Unknown]
